FAERS Safety Report 20540892 (Version 1)
Quarter: 2022Q1

REPORT INFORMATION
  Report Type: Spontaneous
  Country: GB (occurrence: GB)
  Receive Date: 20220302
  Receipt Date: 20220302
  Transmission Date: 20220423
  Serious: Yes (Disabling, Other)
  Sender: FDA-Public Use
  Company Number: None

PATIENT
  Sex: Female
  Weight: 67.12 kg

DRUGS (2)
  1. TRAMADOL HYDROCHLORIDE [Suspect]
     Active Substance: TRAMADOL HYDROCHLORIDE
     Indication: Ill-defined disorder
     Dosage: 100 MILLIGRAM, 3/DAY
     Route: 048
     Dates: start: 2015
  2. TRAMADOL HYDROCHLORIDE [Suspect]
     Active Substance: TRAMADOL HYDROCHLORIDE
     Indication: Myalgia
     Dosage: 50 MILLIGRAM, 1/DAY
     Route: 048
     Dates: start: 2015

REACTIONS (10)
  - Obsessive thoughts [Not Recovered/Not Resolved]
  - Compulsive shopping [Not Recovered/Not Resolved]
  - Tinnitus [Not Recovered/Not Resolved]
  - Depression [Not Recovered/Not Resolved]
  - Anger [Unknown]
  - Suicidal ideation [Unknown]
  - Memory impairment [Unknown]
  - Confusional state [Unknown]
  - Insomnia [Unknown]
  - Hallucination, auditory [Not Recovered/Not Resolved]

NARRATIVE: CASE EVENT DATE: 20150101
